FAERS Safety Report 10408499 (Version 1)
Quarter: 2014Q3

REPORT INFORMATION
  Report Type: Spontaneous
  Country: US (occurrence: None)
  Receive Date: 20140825
  Receipt Date: 20140825
  Transmission Date: 20150326
  Serious: Yes (Other)
  Sender: FDA-Public Use
  Company Number: None

PATIENT
  Sex: Female

DRUGS (1)
  1. CYMBALTA [Suspect]
     Active Substance: DULOXETINE HYDROCHLORIDE
     Dosage: 1  C  QD  ORAL
     Route: 048

REACTIONS (3)
  - Product label on wrong product [None]
  - Drug dispensing error [None]
  - Product quality issue [None]

NARRATIVE: CASE EVENT DATE: 20140821
